FAERS Safety Report 20967409 (Version 1)
Quarter: 2022Q2

REPORT INFORMATION
  Report Type: Other
  Country: CO (occurrence: CO)
  Receive Date: 20220616
  Receipt Date: 20220616
  Transmission Date: 20220721
  Serious: Yes (Other)
  Sender: FDA-Public Use
  Company Number: CO-002147023-NVSC2022CO123542

PATIENT
  Age: 88 Year
  Sex: Female

DRUGS (3)
  1. LUCENTIS [Suspect]
     Active Substance: RANIBIZUMAB
     Indication: Macular degeneration
     Dosage: UNK UNK, QMO
     Route: 047
     Dates: start: 202203
  2. LUCENTIS [Suspect]
     Active Substance: RANIBIZUMAB
     Dosage: UNK
     Route: 065
  3. LUCENTIS [Suspect]
     Active Substance: RANIBIZUMAB
     Dosage: UNK UNK, QMO
     Route: 047
     Dates: start: 202205

REACTIONS (4)
  - Cellulitis [Recovering/Resolving]
  - Pyrexia [Unknown]
  - Eye haemorrhage [Recovering/Resolving]
  - Drug hypersensitivity [Unknown]
